FAERS Safety Report 23244882 (Version 1)
Quarter: 2023Q4

REPORT INFORMATION
  Report Type: Spontaneous
  Country: None (occurrence: CN)
  Receive Date: 20231130
  Receipt Date: 20231130
  Transmission Date: 20240110
  Serious: Yes (Hospitalization)
  Sender: FDA-Public Use
  Company Number: CN-Jiangsu Hengrui Medicine Co., Ltd.-2148834

PATIENT
  Age: 40 Year
  Sex: Female
  Weight: 79.3 kg

DRUGS (4)
  1. OXALIPLATIN [Suspect]
     Active Substance: OXALIPLATIN
     Indication: Diffuse large B-cell lymphoma
     Route: 041
     Dates: start: 20231102, end: 20231102
  2. GEMCITABINE HYDROCHLORIDE [Suspect]
     Active Substance: GEMCITABINE HYDROCHLORIDE
     Route: 041
     Dates: start: 20231102, end: 20231102
  3. DEXAMETHASONE [Suspect]
     Active Substance: DEXAMETHASONE
     Dates: start: 20231102, end: 20231102
  4. ZANUBRUTINIB [Suspect]
     Active Substance: ZANUBRUTINIB
     Dates: start: 20231102, end: 20231102

REACTIONS (1)
  - Tumour lysis syndrome [Recovering/Resolving]

NARRATIVE: CASE EVENT DATE: 20231102
